FAERS Safety Report 5988528-4 (Version None)
Quarter: 2008Q4

REPORT INFORMATION
  Report Type: 
  Country: None (occurrence: None)
  Receive Date: 20081208
  Receipt Date: 20081208
  Transmission Date: 20090506
  Serious: Yes (Life-Threatening, Hospitalization, Other)
  Sender: FDA-Public Use
  Company Number: None

PATIENT
  Age: 38 Year
  Sex: Male
  Weight: 80.7403 kg

DRUGS (1)
  1. ZICAM COLD AND FLU NIGHTIME [Suspect]
     Indication: NASOPHARYNGITIS
     Dosage: RECOMMENDED DOSE
     Dates: start: 20081012, end: 20081012

REACTIONS (2)
  - ATRIAL FIBRILLATION [None]
  - CONVULSION [None]
